FAERS Safety Report 15789221 (Version 1)
Quarter: 2019Q1

REPORT INFORMATION
  Report Type: Spontaneous
  Country: US (occurrence: US)
  Receive Date: 20190104
  Receipt Date: 20190104
  Transmission Date: 20190417
  Serious: No
  Sender: FDA-Public Use
  Company Number: US-PFIZER INC-2018535223

PATIENT

DRUGS (1)
  1. ADVIL MIGRAINE [Suspect]
     Active Substance: IBUPROFEN
     Dosage: 1 DF, UNK (TOOK ONE ADVIL MIGRAINE YESTERDAY AT 2 PM AND TOOK ONE MORE AT 2 AM)

REACTIONS (1)
  - Drug ineffective [Unknown]
